FAERS Safety Report 10053365 (Version 1)
Quarter: 2014Q2

REPORT INFORMATION
  Report Type: Spontaneous
  Country: US (occurrence: US)
  Receive Date: 20140402
  Receipt Date: 20140402
  Transmission Date: 20141212
  Serious: No
  Sender: FDA-Public Use
  Company Number: US-TEVA-473294USA

PATIENT
  Age: 27 Year
  Sex: Female
  Weight: 61.74 kg

DRUGS (6)
  1. PLAN B ONE-STEP [Suspect]
     Indication: POST COITAL CONTRACEPTION
     Dosage: 1.5 MILLIGRAM DAILY;
     Route: 048
     Dates: start: 20140217, end: 20140217
  2. MULTIVITAMIN [Concomitant]
     Indication: ROUTINE HEALTH MAINTENANCE
  3. GINKGO BILOBA [Concomitant]
     Indication: ROUTINE HEALTH MAINTENANCE
  4. IRON [Concomitant]
     Indication: ROUTINE HEALTH MAINTENANCE
  5. VITAMIN B12 [Concomitant]
     Indication: ROUTINE HEALTH MAINTENANCE
  6. VITAMIN D3 [Concomitant]
     Indication: ROUTINE HEALTH MAINTENANCE

REACTIONS (2)
  - Diarrhoea [Not Recovered/Not Resolved]
  - Menstruation irregular [Not Recovered/Not Resolved]
